FAERS Safety Report 5796616-0 (Version None)
Quarter: 2008Q3

REPORT INFORMATION
  Report Type: 
  Country: None (occurrence: None)
  Receive Date: 20080701
  Receipt Date: 20080619
  Transmission Date: 20090109
  Serious: Yes (Life-Threatening, Hospitalization)
  Sender: FDA-Public Use
  Company Number: JP-ROCHE-568741

PATIENT
  Age: 15 Year
  Sex: Male

DRUGS (5)
  1. TAMIFLU [Suspect]
     Route: 065
  2. TAMIFLU [Suspect]
     Route: 065
  3. TAMIFLU [Suspect]
     Route: 065
  4. ACETAMINOPHEN [Concomitant]
  5. UNSPECIFIED DRUGS [Concomitant]

REACTIONS (6)
  - ABNORMAL BEHAVIOUR [None]
  - AGITATION [None]
  - DELIRIUM [None]
  - HALLUCINATION [None]
  - LETHARGY [None]
  - MENTAL DISORDER [None]
